FAERS Safety Report 19305883 (Version 3)
Quarter: 2021Q4

REPORT INFORMATION
  Report Type: Report from Study
  Country: US (occurrence: US)
  Receive Date: 20210525
  Receipt Date: 20211130
  Transmission Date: 20220303
  Serious: Yes (Hospitalization)
  Sender: FDA-Public Use
  Company Number: NVSC2021US107566

PATIENT
  Age: 52 Year
  Sex: Male

DRUGS (2)
  1. ENTRESTO [Suspect]
     Active Substance: SACUBITRIL\VALSARTAN
     Indication: Cardiac failure chronic
     Dosage: 100 MG, BID (49/51 MG)
     Route: 048
     Dates: start: 2018
  2. ENTRESTO [Suspect]
     Active Substance: SACUBITRIL\VALSARTAN
     Dosage: 0.5 DF (24/26 MG)
     Route: 048
     Dates: start: 20210419

REACTIONS (3)
  - Procedural complication [Not Recovered/Not Resolved]
  - Dizziness [Recovered/Resolved with Sequelae]
  - Wrong technique in product usage process [Unknown]

NARRATIVE: CASE EVENT DATE: 20210202
